FAERS Safety Report 15356375 (Version 3)
Quarter: 2018Q4

REPORT INFORMATION
  Report Type: Spontaneous
  Country: US (occurrence: US)
  Receive Date: 20180906
  Receipt Date: 20181111
  Transmission Date: 20190204
  Serious: Yes (Other)
  Sender: FDA-Public Use
  Company Number: US-JNJFOC-20180822303

PATIENT
  Sex: Male

DRUGS (1)
  1. PREZCOBIX [Suspect]
     Active Substance: COBICISTAT\DARUNAVIR ETHANOLATE
     Indication: HIV INFECTION
     Dosage: INITIATED TREATMENT 2 YEARS AGO
     Route: 048

REACTIONS (3)
  - Drug ineffective [Unknown]
  - Diabetes mellitus [Unknown]
  - Visual impairment [Unknown]
